FAERS Safety Report 11715803 (Version 2)
Quarter: 2015Q4

REPORT INFORMATION
  Report Type: Spontaneous
  Country: US (occurrence: US)
  Receive Date: 20151104
  Receipt Date: 20151110
  Transmission Date: 20160304
  Serious: No
  Sender: FDA-Public Use
  Company Number: US-ELI_LILLY_AND_COMPANY-US201105004402

PATIENT
  Sex: Female

DRUGS (5)
  1. FORTEO [Suspect]
     Active Substance: TERIPARATIDE
     Dosage: 20 UG, QD
     Route: 065
     Dates: end: 201202
  2. FORTEO [Suspect]
     Active Substance: TERIPARATIDE
     Dosage: 20 UG, QD
     Route: 065
  3. FORTEO [Suspect]
     Active Substance: TERIPARATIDE
     Dosage: 20 UG, QD
     Route: 065
  4. FORTEO [Suspect]
     Active Substance: TERIPARATIDE
     Dosage: 20 UG, QD
     Route: 065
  5. FORTEO [Suspect]
     Active Substance: TERIPARATIDE
     Indication: OSTEOPOROSIS
     Dosage: 20 UG, QD
     Route: 065
     Dates: start: 201104

REACTIONS (17)
  - Injection site pain [Unknown]
  - Musculoskeletal discomfort [Unknown]
  - Back disorder [Unknown]
  - Amnesia [Unknown]
  - Hypoaesthesia [Unknown]
  - Depression [Unknown]
  - Spinal column injury [Unknown]
  - Arthritis [Unknown]
  - Pain in extremity [Unknown]
  - Groin pain [Unknown]
  - Arthralgia [Unknown]
  - Pain [Unknown]
  - Nuclear magnetic resonance imaging abnormal [Unknown]
  - Bone density decreased [Unknown]
  - Musculoskeletal pain [Unknown]
  - Micturition disorder [Unknown]
  - Gastrointestinal disorder [Unknown]
